FAERS Safety Report 22589817 (Version 1)
Quarter: 2023Q2

REPORT INFORMATION
  Report Type: Spontaneous
  Country: CN (occurrence: CN)
  Receive Date: 20230612
  Receipt Date: 20230612
  Transmission Date: 20230721
  Serious: Yes (Hospitalization)
  Sender: FDA-Public Use
  Company Number: CN-ELI_LILLY_AND_COMPANY-CN202306001464

PATIENT
  Age: 67 Year
  Sex: Male

DRUGS (4)
  1. PEMETREXED [Suspect]
     Active Substance: PEMETREXED
     Indication: Lung adenocarcinoma
     Dosage: 900 MG, AC REGIMEN
     Route: 065
     Dates: start: 20211118
  2. PEMETREXED [Suspect]
     Active Substance: PEMETREXED
     Dosage: 900 MG, SINGLE A REGIMEN
     Route: 065
     Dates: start: 20221214
  3. CARBOPLATIN [Suspect]
     Active Substance: CARBOPLATIN
     Indication: Lung adenocarcinoma
     Dosage: 560 MG, AC REGIMEN
     Route: 065
  4. SINTILIMAB [Suspect]
     Active Substance: SINTILIMAB
     Indication: Lung adenocarcinoma
     Dosage: 200 MG, AC REGIMEN
     Route: 065

REACTIONS (4)
  - Tubulointerstitial nephritis [Unknown]
  - Renal tubular necrosis [Unknown]
  - Acute kidney injury [Unknown]
  - Anaemia [Unknown]

NARRATIVE: CASE EVENT DATE: 20211201
